FAERS Safety Report 13089902 (Version 1)
Quarter: 2017Q1

REPORT INFORMATION
  Report Type: Spontaneous
  Country: CN (occurrence: CN)
  Receive Date: 20170105
  Receipt Date: 20170105
  Transmission Date: 20170428
  Serious: Yes (Other)
  Sender: FDA-Public Use
  Company Number: CN-BAYER-2017-001496

PATIENT
  Age: 83 Year
  Sex: Female
  Weight: 50 kg

DRUGS (15)
  1. GLUCOSE INJECTION [Concomitant]
     Dosage: 200 MG, QD
     Dates: start: 20160918, end: 20160922
  2. EUCALIPTOL [Concomitant]
     Indication: SPUTUM ABNORMAL
     Dosage: 0.3 G, QD
     Route: 048
     Dates: start: 20160918, end: 20160930
  3. FLUNARIZINE [Concomitant]
     Active Substance: FLUNARIZINE
     Indication: DIZZINESS
     Dosage: 5 MG, QD
     Route: 048
     Dates: start: 20160919, end: 20160930
  4. CALCITRIOL. [Concomitant]
     Active Substance: CALCITRIOL
     Indication: SUPPLEMENTATION THERAPY
     Dosage: 250 NG, QD
     Route: 048
     Dates: start: 20160921, end: 20160930
  5. CALCIMAGON-D3 [Concomitant]
     Active Substance: CALCIUM\CHOLECALCIFEROL
     Indication: SUPPLEMENTATION THERAPY
     Dosage: 0.5 G, QD
     Route: 048
     Dates: start: 20160921, end: 20160924
  6. AVELOX [Suspect]
     Active Substance: MOXIFLOXACIN HYDROCHLORIDE
     Indication: LUNG INFECTION
     Dosage: 400 MG, QD
     Route: 041
     Dates: start: 20160918, end: 20160922
  7. POLYPEPTIDE [Concomitant]
     Dosage: 4 ML, QD
     Route: 041
     Dates: start: 20160918, end: 20160922
  8. RABEPRAZOLE SODIUM. [Concomitant]
     Active Substance: RABEPRAZOLE SODIUM
     Indication: MUSCLE SPASMS
  9. AMBROXOL HYDROCHLORIDE [Concomitant]
     Active Substance: AMBROXOL HYDROCHLORIDE
     Indication: SPUTUM ABNORMAL
     Dosage: 15 MG, QD
     Route: 045
     Dates: start: 20160919, end: 20160928
  10. MOSAPRIDE CITRATE [Concomitant]
     Active Substance: MOSAPRIDE CITRATE
     Indication: DYSPEPSIA
     Dosage: 50 MG, QD
     Route: 048
     Dates: start: 20160918, end: 20160930
  11. RABEPRAZOLE SODIUM. [Concomitant]
     Active Substance: RABEPRAZOLE SODIUM
     Indication: GASTRIC PH INCREASED
     Dosage: 10 MG, QD
     Route: 048
     Dates: start: 20160918, end: 20160930
  12. KETOTIFEN FUMARATE. [Concomitant]
     Active Substance: KETOTIFEN FUMARATE
     Indication: COUGH
     Dosage: 1 MG, QD
     Route: 048
     Dates: start: 20160919, end: 20160930
  13. HEPARIN SODIUM. [Concomitant]
     Active Substance: HEPARIN SODIUM
     Indication: COAGULOPATHY
     Dosage: 0.4 ML, QD
     Route: 058
     Dates: start: 20160918, end: 20160922
  14. SALVIA MILTIORRHIZA [Concomitant]
     Active Substance: HERBALS
     Dosage: UNK
  15. MUCOSOLVAN [Concomitant]
     Active Substance: AMBROXOL HYDROCHLORIDE
     Indication: SPUTUM ABNORMAL
     Dosage: 15 MG, BID

REACTIONS (3)
  - Chills [Recovering/Resolving]
  - Pyrexia [Recovering/Resolving]
  - Fear of disease [Recovering/Resolving]

NARRATIVE: CASE EVENT DATE: 20160922
